FAERS Safety Report 4931244-8 (Version None)
Quarter: 2006Q1

REPORT INFORMATION
  Report Type: 
  Country: None (occurrence: None)
  Receive Date: 20060302
  Receipt Date: 20060222
  Transmission Date: 20060701
  Serious: Yes (Death)
  Sender: FDA-Public Use
  Company Number: GB-MERCK-0602USA05285

PATIENT
  Age: 85 Year
  Sex: Male

DRUGS (13)
  1. PRINIVIL [Suspect]
     Indication: CARDIAC FAILURE
     Route: 048
     Dates: start: 20051101, end: 20060101
  2. OMEPRAZOLE [Concomitant]
     Route: 065
  3. ACETAMINOPHEN [Concomitant]
     Route: 065
  4. ASPIRIN [Concomitant]
     Route: 065
  5. FLUOXETINE [Concomitant]
     Route: 065
  6. SENNA [Concomitant]
     Route: 065
  7. MONOMAX [Concomitant]
     Route: 065
  8. SPIRONOLACTONE [Concomitant]
     Route: 065
  9. FUROSEMIDE [Concomitant]
     Route: 065
  10. TIZANIDINE HYDROCHLORIDE [Concomitant]
     Route: 065
  11. BENSERAZIDE HYDROCHLORIDE AND LEVODOPA [Concomitant]
     Route: 065
  12. HYDROXYUREA [Concomitant]
     Route: 065
  13. LACTULOSE [Concomitant]
     Route: 065

REACTIONS (1)
  - RENAL FAILURE [None]
